FAERS Safety Report 9218152 (Version 7)
Quarter: 2015Q1

REPORT INFORMATION
  Report Type: Spontaneous
  Country: US (occurrence: US)
  Receive Date: 20130408
  Receipt Date: 20150223
  Transmission Date: 20150721
  Serious: Yes (Hospitalization, Other)
  Sender: FDA-Public Use
  Company Number: US-009507513-1304USA002745

PATIENT
  Sex: Male
  Weight: 82.86 kg

DRUGS (1)
  1. PROPECIA [Suspect]
     Active Substance: FINASTERIDE
     Indication: ALOPECIA AREATA
     Dosage: 1 MG, QD
     Route: 048
     Dates: start: 20100219, end: 20120412

REACTIONS (20)
  - Neuralgia [Not Recovered/Not Resolved]
  - Hip arthroplasty [Unknown]
  - Fall [Recovered/Resolved]
  - Syncope [Recovered/Resolved]
  - Anxiety [Not Recovered/Not Resolved]
  - Malaise [Not Recovered/Not Resolved]
  - Brain neoplasm [Unknown]
  - Sexual dysfunction [Not Recovered/Not Resolved]
  - Autonomic neuropathy [Unknown]
  - Essential hypertension [Not Recovered/Not Resolved]
  - Ejaculation disorder [Not Recovered/Not Resolved]
  - Arthritis [Not Recovered/Not Resolved]
  - Depression [Not Recovered/Not Resolved]
  - Pain [Unknown]
  - Headache [Unknown]
  - Bipolar I disorder [Not Recovered/Not Resolved]
  - Erectile dysfunction [Not Recovered/Not Resolved]
  - Hip arthroplasty [Unknown]
  - Fatigue [Not Recovered/Not Resolved]
  - Libido decreased [Not Recovered/Not Resolved]

NARRATIVE: CASE EVENT DATE: 2010
